FAERS Safety Report 5793372-7 (Version None)
Quarter: 2008Q2

REPORT INFORMATION
  Report Type: 
  Country: None (occurrence: None)
  Receive Date: 20080627
  Receipt Date: 20080618
  Transmission Date: 20081010
  Serious: Yes (Life-Threatening, Hospitalization)
  Sender: FDA-Public Use
  Company Number: PL-AMGEN-UK282137

PATIENT
  Sex: Male
  Weight: 66.5 kg

DRUGS (4)
  1. ARANESP [Suspect]
     Indication: RENAL FAILURE CHRONIC
     Route: 042
     Dates: start: 20070424
  2. NEORECORMON [Suspect]
     Route: 058
     Dates: start: 20070313, end: 20070417
  3. EPREX [Suspect]
     Route: 058
     Dates: start: 20080401, end: 20080517
  4. RED BLOOD CELLS [Concomitant]
     Route: 041
     Dates: start: 20080402

REACTIONS (1)
  - APLASIA PURE RED CELL [None]
